FAERS Safety Report 7260440-2 (Version None)
Quarter: 2011Q1

REPORT INFORMATION
  Report Type: 
  Country: None (occurrence: None)
  Receive Date: 20110130
  Receipt Date: 20101109
  Transmission Date: 20110831
  Serious: Yes (Hospitalization)
  Sender: FDA-Public Use
  Company Number: US-ABBOTT-10P-163-0684481-00

PATIENT
  Age: 61 Year
  Sex: Female

DRUGS (8)
  1. METHOTREXATE [Concomitant]
     Indication: PRODUCT USED FOR UNKNOWN INDICATION
     Route: 048
  2. HUMIRA [Suspect]
     Indication: RHEUMATOID ARTHRITIS
     Dates: start: 20080101
  3. VITAMIN B-12 [Concomitant]
     Indication: ANAEMIA
     Route: 058
  4. PRILOSEC [Concomitant]
     Indication: ABDOMINAL DISCOMFORT
     Route: 048
  5. FOLIC ACID [Concomitant]
     Indication: MALABSORPTION
     Dosage: FREQUENCY NOT REPORTED
     Route: 048
  6. HUMIRA [Suspect]
     Route: 058
     Dates: start: 20040101, end: 20060101
  7. VALTREX [Concomitant]
     Indication: VIRAL INFECTION
  8. NORCO [Concomitant]
     Indication: PAIN
     Route: 048

REACTIONS (4)
  - MASS [None]
  - FOOT OPERATION [None]
  - INFECTION [None]
  - ANKLE OPERATION [None]
